FAERS Safety Report 7608741-X (Version None)
Quarter: 2011Q3

REPORT INFORMATION
  Report Type: 
  Country: None (occurrence: None)
  Receive Date: 20110714
  Receipt Date: 20110714
  Transmission Date: 20111222
  Serious: No
  Sender: FDA-Public Use
  Company Number: None

PATIENT
  Sex: Female
  Weight: 78.925 kg

DRUGS (1)
  1. LISINOPRIL [Suspect]
     Dosage: 10MG TAB
     Route: 048

REACTIONS (3)
  - BURNING SENSATION [None]
  - FEELING HOT [None]
  - LIP SWELLING [None]
